FAERS Safety Report 17680852 (Version 1)
Quarter: 2020Q2

REPORT INFORMATION
  Report Type: Spontaneous
  Country: US (occurrence: US)
  Receive Date: 20200417
  Receipt Date: 20200417
  Transmission Date: 20200714
  Serious: No
  Sender: FDA-Public Use
  Company Number: None

PATIENT
  Age: 74 Day
  Sex: Female
  Weight: 53.55 kg

DRUGS (5)
  1. CELEBREX [Concomitant]
     Active Substance: CELECOXIB
  2. IBUPROFEN. [Concomitant]
     Active Substance: IBUPROFEN
  3. TIZANIDINE. [Suspect]
     Active Substance: TIZANIDINE
     Indication: PAIN IN EXTREMITY
     Dosage: ?          QUANTITY:1 TABLET(S);?
     Route: 048
  4. CALCIUM [Concomitant]
     Active Substance: CALCIUM
  5. GLUCOSAMINE [Concomitant]
     Active Substance: GLUCOSAMINE

REACTIONS (5)
  - Dizziness [None]
  - Pallor [None]
  - Sleep disorder [None]
  - Nausea [None]
  - Dry mouth [None]

NARRATIVE: CASE EVENT DATE: 20200416
